FAERS Safety Report 9529425 (Version 6)
Quarter: 2020Q3

REPORT INFORMATION
  Report Type: Spontaneous
  Country: US (occurrence: US)
  Receive Date: 20130917
  Receipt Date: 20200911
  Transmission Date: 20201103
  Serious: Yes (Other)
  Sender: FDA-Public Use
  Company Number: US-PFIZER INC-2013262396

PATIENT
  Age: 65 Year
  Sex: Female
  Weight: 52.61 kg

DRUGS (3)
  1. PREMARIN [Suspect]
     Active Substance: ESTROGENS, CONJUGATED
     Indication: AFFECTIVE DISORDER
     Dosage: 30 G, 2X/DAY
  2. PREMARIN [Suspect]
     Active Substance: ESTROGENS, CONJUGATED
     Indication: VULVOVAGINAL DRYNESS
     Dosage: UNK
     Route: 067
  3. PREMARIN [Suspect]
     Active Substance: ESTROGENS, CONJUGATED
     Dosage: UNK, AS NEEDED (APPLY AS NEEDED)

REACTIONS (4)
  - Off label use [Unknown]
  - Product prescribing error [Unknown]
  - Product use issue [Unknown]
  - Arthritis [Unknown]
